FAERS Safety Report 23203415 (Version 4)
Quarter: 2024Q3

REPORT INFORMATION
  Report Type: Report from Study
  Country: US (occurrence: US)
  Receive Date: 20231120
  Receipt Date: 20240705
  Transmission Date: 20241017
  Serious: Yes (Hospitalization, Other)
  Sender: TAKEDA
  Company Number: US-TAKEDA-US201846757

PATIENT
  Age: 57 Year
  Sex: Female

DRUGS (2)
  1. HUMAN IMMUNOGLOBULIN G [Suspect]
     Active Substance: HUMAN IMMUNOGLOBULIN G
     Indication: Primary immunodeficiency syndrome
     Dosage: 20 GRAM, Q2WEEKS
     Route: 065
  2. HUMAN IMMUNOGLOBULIN G [Suspect]
     Active Substance: HUMAN IMMUNOGLOBULIN G
     Indication: Immunodeficiency common variable
     Dosage: UNK
     Route: 058

REACTIONS (12)
  - Sinusitis [Unknown]
  - Respiratory syncytial virus infection [Unknown]
  - Cardiac disorder [Unknown]
  - Thrombosis [Unknown]
  - Viral infection [Unknown]
  - Asthma [Unknown]
  - Hernia [Unknown]
  - Alopecia [Unknown]
  - Upper respiratory tract infection [Unknown]
  - Infusion related reaction [Unknown]
  - Cough [Unknown]
  - Product dose omission issue [Unknown]

NARRATIVE: CASE EVENT DATE: 20181130
